FAERS Safety Report 25984242 (Version 1)
Quarter: 2025Q4

REPORT INFORMATION
  Report Type: Spontaneous
  Country: TR (occurrence: TR)
  Receive Date: 20251031
  Receipt Date: 20251031
  Transmission Date: 20260118
  Serious: Yes (Other)
  Sender: ROCHE
  Company Number: TR-ROCHE-10000416328

PATIENT
  Age: 34 Year
  Weight: 89 kg

DRUGS (1)
  1. EVRYSDI [Suspect]
     Active Substance: RISDIPLAM
     Indication: Spinal muscular atrophy
     Dosage: 0.75 MG/ML
     Route: 065
     Dates: start: 20250610

REACTIONS (1)
  - Hypertension [Unknown]
